FAERS Safety Report 13990968 (Version 1)
Quarter: 2017Q3

REPORT INFORMATION
  Report Type: Report from Study
  Country: US (occurrence: US)
  Receive Date: 20170920
  Receipt Date: 20170920
  Transmission Date: 20171128
  Serious: Yes (Other)
  Sender: FDA-Public Use
  Company Number: US-JNJFOC-20170917172

PATIENT
  Sex: Female

DRUGS (3)
  1. DOXORUBICIN HYDROCHLORIDE. [Suspect]
     Active Substance: DOXORUBICIN HYDROCHLORIDE
     Indication: BREAST CANCER
     Dosage: EVERY 21 DAYS FOR SIX CYCLES
     Route: 065
  2. CYCLOPHOSPHAMIDE. [Suspect]
     Active Substance: CYCLOPHOSPHAMIDE
     Indication: BREAST CANCER
     Route: 065
  3. DOCETAXEL. [Suspect]
     Active Substance: DOCETAXEL
     Indication: BREAST CANCER
     Route: 065

REACTIONS (36)
  - Hypoxia [Unknown]
  - Wound infection [Unknown]
  - Aspartate aminotransferase increased [Unknown]
  - Headache [Unknown]
  - Rash maculo-papular [Unknown]
  - Hypersensitivity [Unknown]
  - Platelet count decreased [Unknown]
  - Myalgia [Unknown]
  - Embolism [Unknown]
  - Sepsis [Unknown]
  - Peripheral sensory neuropathy [Unknown]
  - Adverse event [Unknown]
  - Anaemia [Unknown]
  - Diarrhoea [Unknown]
  - Dehydration [Unknown]
  - Arthralgia [Unknown]
  - Abdominal pain [Unknown]
  - Non-cardiac chest pain [Unknown]
  - Lung infection [Unknown]
  - Cystitis [Unknown]
  - Pneumonitis [Unknown]
  - Bone pain [Unknown]
  - Fatigue [Unknown]
  - Neutrophil count decreased [Unknown]
  - White blood cell count decreased [Unknown]
  - Left ventricular dysfunction [Unknown]
  - Palmar-plantar erythrodysaesthesia syndrome [Unknown]
  - Infusion related reaction [Unknown]
  - Hepatic failure [Unknown]
  - Febrile neutropenia [Unknown]
  - Hypertension [Unknown]
  - Alanine aminotransferase increased [Unknown]
  - Stomatitis [Unknown]
  - Vomiting [Unknown]
  - Pyrexia [Unknown]
  - Peripheral motor neuropathy [Unknown]
